FAERS Safety Report 15656596 (Version 2)
Quarter: 2018Q4

REPORT INFORMATION
  Report Type: Spontaneous
  Country: GB (occurrence: US)
  Receive Date: 20181126
  Receipt Date: 20181204
  Transmission Date: 20190205
  Serious: Yes (Other)
  Sender: FDA-Public Use
  Company Number: GB-PFIZER INC-2018485739

PATIENT
  Age: 76 Year
  Sex: Male
  Weight: 64 kg

DRUGS (13)
  1. ALLOPURINOL. [Concomitant]
     Active Substance: ALLOPURINOL
     Dosage: UNK
  2. STATIN [NYSTATIN] [Concomitant]
     Dosage: UNK
  3. FATS NOS [Concomitant]
     Active Substance: SOYBEAN OIL
     Dosage: UNK
  4. PROTEIN [Concomitant]
     Active Substance: PROTEIN
     Dosage: UNK
  5. ELIQUIS [Suspect]
     Active Substance: APIXABAN
     Indication: PULMONARY EMBOLISM
     Dosage: 2.5 MG, UNK
     Route: 048
     Dates: start: 20180808, end: 20181026
  6. AXITINIB [Suspect]
     Active Substance: AXITINIB
     Indication: RENAL CELL CARCINOMA
     Dosage: UNK UNK, BID
     Route: 048
     Dates: start: 20170602
  7. ASPIRIN BAYER [Suspect]
     Active Substance: ASPIRIN
     Indication: DISEASE RISK FACTOR
     Dosage: 75 MG, QD
     Route: 048
     Dates: start: 20180404, end: 20181026
  8. CODEINE PHOSPHATE [Concomitant]
     Active Substance: CODEINE PHOSPHATE
     Dosage: UNK
  9. AMLODIPINE [Concomitant]
     Active Substance: AMLODIPINE BESYLATE
     Dosage: UNK
  10. VITAMINS NOS [Concomitant]
     Active Substance: VITAMINS
     Dosage: UNK
  11. SALBUTAMOL [Concomitant]
     Active Substance: ALBUTEROL
     Dosage: UNK
  12. MINERALS NOS [Concomitant]
     Active Substance: MINERALS
     Dosage: UNK
  13. LAXIDO [Concomitant]
     Active Substance: POLYETHYLENE GLYCOL 3350\POTASSIUM CHLORIDE\SODIUM BICARBONATE\SODIUM CHLORIDE
     Dosage: UNK

REACTIONS (2)
  - Cerebrovascular accident [Unknown]
  - Cerebral haematoma [Unknown]
